FAERS Safety Report 18969527 (Version 1)
Quarter: 2021Q1

REPORT INFORMATION
  Report Type: Spontaneous
  Country: US (occurrence: US)
  Receive Date: 20210304
  Receipt Date: 20210304
  Transmission Date: 20210420
  Serious: No
  Sender: FDA-Public Use
  Company Number: None

PATIENT
  Age: 89 Year
  Sex: Female

DRUGS (7)
  1. AMBRISENTAN [Suspect]
     Active Substance: AMBRISENTAN
     Indication: PULMONARY ARTERIAL HYPERTENSION
     Route: 048
  2. LORATADINE. [Concomitant]
     Active Substance: LORATADINE
  3. LOVASTATIN. [Concomitant]
     Active Substance: LOVASTATIN
  4. SPIRONOLACTONE. [Concomitant]
     Active Substance: SPIRONOLACTONE
  5. ADCIRCA [Concomitant]
     Active Substance: TADALAFIL
  6. ALPRAZOLAM. [Concomitant]
     Active Substance: ALPRAZOLAM
  7. LASIX [Concomitant]
     Active Substance: FUROSEMIDE

REACTIONS (2)
  - Therapy interrupted [None]
  - Pulmonary congestion [None]

NARRATIVE: CASE EVENT DATE: 20210304
